FAERS Safety Report 5278728-3 (Version None)
Quarter: 2007Q1

REPORT INFORMATION
  Report Type: 
  Country: None (occurrence: None)
  Receive Date: 20061213
  Receipt Date: 20050616
  Transmission Date: 20070707
  Serious: Yes (Hospitalization)
  Sender: FDA-Public Use
  Company Number: 2005UW06160

PATIENT
  Age: 61 Year
  Sex: Male
  Weight: 87.5442 kg

DRUGS (4)
  1. SEROQUEL [Suspect]
     Indication: SCHIZOPHRENIA
     Dosage: 200 MG DAILY PO
     Route: 048
     Dates: start: 20050312, end: 20050315
  2. GEODON [Concomitant]
  3. DEPAKOTE [Concomitant]
  4. METFORMIN HCL [Concomitant]

REACTIONS (1)
  - LYMPHADENOPATHY [None]
